FAERS Safety Report 20866299 (Version 4)
Quarter: 2022Q2

REPORT INFORMATION
  Report Type: Spontaneous
  Country: US (occurrence: US)
  Receive Date: 20220524
  Receipt Date: 20220622
  Transmission Date: 20220720
  Serious: No
  Sender: FDA-Public Use
  Company Number: US-UNITED THERAPEUTICS-UNT-2022-010788

PATIENT
  Age: 29 Year
  Sex: Male
  Weight: 71.202 kg

DRUGS (6)
  1. REMODULIN [Suspect]
     Active Substance: TREPROSTINIL
     Indication: Pulmonary arterial hypertension
     Dosage: 0.010 ?G/KG (PRE-FILLED WITH 2.4ML PER CASSETTE AT A RATE OF 17 MCL/HR), CONTINUING
     Route: 058
     Dates: start: 20220511
  2. REMODULIN [Suspect]
     Active Substance: TREPROSTINIL
     Dosage: 0.020 ?G/KG, CONTINUING (PRE-FILLED WITH 3ML PER CASSETTE AT A RATE OF 33 MCL/HR)
     Route: 058
     Dates: start: 202205, end: 2022
  3. REMODULIN [Suspect]
     Active Substance: TREPROSTINIL
     Indication: Pulmonary arterial hypertension
     Dosage: UNK, CONTINUING
     Route: 058
     Dates: start: 2022
  4. REMODULIN [Suspect]
     Active Substance: TREPROSTINIL
     Dosage: 0.020 ?G/KG, CONTINUING (PRE-FILLED WITH 3ML PER CASSETTE AT A RATE OF 17 MCL/HR)
     Route: 058
     Dates: start: 2022
  5. AMBRISENTAN [Concomitant]
     Active Substance: AMBRISENTAN
     Indication: Product used for unknown indication
     Dosage: UNK
     Route: 065
  6. TADALAFIL [Concomitant]
     Active Substance: TADALAFIL
     Indication: Product used for unknown indication
     Dosage: UNK
     Route: 065

REACTIONS (11)
  - Infusion site pain [Unknown]
  - Pain [Unknown]
  - Device failure [Unknown]
  - Device infusion issue [Unknown]
  - Device wireless communication issue [Unknown]
  - Wrong technique in product usage process [Unknown]
  - Device failure [Unknown]
  - Device dislocation [Recovered/Resolved]
  - Device power source issue [Unknown]
  - Product quality issue [Unknown]
  - Device physical property issue [Unknown]

NARRATIVE: CASE EVENT DATE: 20220501
